FAERS Safety Report 5093574-1 (Version None)
Quarter: 2006Q3

REPORT INFORMATION
  Report Type: 
  Country: None (occurrence: None)
  Receive Date: 20060826
  Receipt Date: 20060815
  Transmission Date: 20061208
  Serious: Yes (Hospitalization)
  Sender: FDA-Public Use
  Company Number: US200605003003

PATIENT
  Age: 73 Year
  Sex: Female

DRUGS (1)
  1. ILETIN [Suspect]
     Indication: DIABETES MELLITUS
     Dates: end: 20060512

REACTIONS (3)
  - ATRIAL FIBRILLATION [None]
  - CARDIAC FAILURE [None]
  - CHEST PAIN [None]
